FAERS Safety Report 18797116 (Version 1)
Quarter: 2021Q1

REPORT INFORMATION
  Report Type: Spontaneous
  Country: US (occurrence: US)
  Receive Date: 20210128
  Receipt Date: 20210128
  Transmission Date: 20210419
  Serious: No
  Sender: FDA-Public Use
  Company Number: US-JNJFOC-20210124922

PATIENT
  Age: 71 Year
  Sex: Male
  Weight: 74.91 kg

DRUGS (1)
  1. PEPCID AC [Suspect]
     Active Substance: FAMOTIDINE
     Indication: DYSPEPSIA
     Dosage: 1?2 TABLETS DAILY. ONCE OR TWICE DAILY. LAST ADMINISTRATION DATE: 13?JAN?2021
     Route: 048
     Dates: start: 20201227

REACTIONS (1)
  - Drug ineffective [Unknown]
